FAERS Safety Report 8549880-9 (Version None)
Quarter: 2012Q3

REPORT INFORMATION
  Report Type: 
  Country: None (occurrence: None)
  Receive Date: 20120730
  Receipt Date: 20111110
  Transmission Date: 20120928
  Serious: No
  Sender: FDA-Public Use
  Company Number: US-GLAXOSMITHKLINE-A0952629A

PATIENT
  Age: 54 Year
  Sex: Male

DRUGS (2)
  1. SUMATRIPTAN SUCCINATE [Suspect]
     Indication: MIGRAINE
     Dosage: 1TAB AS REQUIRED
     Route: 048
     Dates: start: 20110901
  2. NO CONCURRENT MEDICATION [Concomitant]

REACTIONS (1)
  - DRUG INEFFECTIVE [None]
